FAERS Safety Report 14838528 (Version 2)
Quarter: 2018Q4

REPORT INFORMATION
  Report Type: Spontaneous
  Country: US (occurrence: US)
  Receive Date: 20180502
  Receipt Date: 20181207
  Transmission Date: 20190204
  Serious: Yes (Hospitalization, Other)
  Sender: FDA-Public Use
  Company Number: US-GILEAD-2018-0335766

PATIENT
  Age: 80 Year
  Sex: Female

DRUGS (4)
  1. RITUXAN [Concomitant]
     Active Substance: RITUXIMAB
     Indication: ARTHRITIS
  2. METHENAMINE [Concomitant]
     Active Substance: METHENAMINE
     Dosage: 1 G, BID
  3. VIREAD [Suspect]
     Active Substance: TENOFOVIR DISOPROXIL FUMARATE
     Indication: HEPATITIS B
     Dosage: UNK
     Route: 065
  4. VITAMIN C [Concomitant]
     Active Substance: ASCORBIC ACID
     Dosage: 1000 MG, BID

REACTIONS (10)
  - Hepatitis B reactivation [Unknown]
  - Urinary tract infection [Unknown]
  - Migraine [Not Recovered/Not Resolved]
  - Malaise [Recovering/Resolving]
  - Drug interaction [Not Recovered/Not Resolved]
  - Bone marrow tumour cell infiltration [Not Recovered/Not Resolved]
  - Osteonecrosis [Recovered/Resolved]
  - Bladder disorder [Not Recovered/Not Resolved]
  - Diarrhoea [Not Recovered/Not Resolved]
  - Osteonecrosis [Not Recovered/Not Resolved]

NARRATIVE: CASE EVENT DATE: 2017
